FAERS Safety Report 9331518 (Version 1)
Quarter: 2013Q2

REPORT INFORMATION
  Report Type: Spontaneous
  Country: US (occurrence: None)
  Receive Date: 20130603
  Receipt Date: 20130603
  Transmission Date: 20140414
  Serious: Yes (Death)
  Sender: FDA-Public Use
  Company Number: SYM-2013-04215

PATIENT
  Age: 86 Year
  Sex: Female

DRUGS (8)
  1. XENAZINE [Suspect]
     Indication: PRODUCT USED FOR UNKNOWN INDICATION
     Dosage: 5 IN 1 DAY
     Route: 048
  2. METOPROLOL TAR (METOPROLOL) (TABLET) (METOPROLOL) [Concomitant]
  3. CLOPIDOGREL (CLOPIDOGREL) (TABLET) (CLOPIDOGREL) [Concomitant]
  4. AMLODIPINE (AMLODIPINE) (TABLET) (AMLODIPINE) [Concomitant]
  5. TRAMADOL HCL (TRAMADOL HYDROCHLORIDE) (TABLET) (TRAMADOL HYDROCHLORIDE) [Concomitant]
  6. ALBUTEROL AER (SALBUTAMOL) (SALBUTAMOL) [Concomitant]
  7. IPRATROPIUM/ SOLALBUTER (IPRATROPIUM) (IPRATROPIUM) [Concomitant]
  8. LEVOFLOXACIN (LEVOFLOXACIN) (TABLET) (LEVOFLOXACIN) [Concomitant]

REACTIONS (1)
  - Death [None]
